FAERS Safety Report 4590738-8 (Version None)
Quarter: 2005Q1

REPORT INFORMATION
  Report Type: 
  Country: None (occurrence: None)
  Receive Date: 20050224
  Receipt Date: 20041222
  Transmission Date: 20050727
  Serious: Yes (Hospitalization)
  Sender: FDA-Public Use
  Company Number: US-MERCK-0412USA02771

PATIENT
  Age: 76 Year
  Sex: Female

DRUGS (4)
  1. VIOXX [Suspect]
     Indication: ARTHRITIS
     Route: 048
     Dates: start: 20030801, end: 20040201
  2. GLYBURIDE [Concomitant]
     Route: 065
  3. TOPROL-XL [Concomitant]
     Route: 065
  4. [THERAPY UNSPECIFIED] [Concomitant]
     Route: 065

REACTIONS (5)
  - BRADYCARDIA [None]
  - DIZZINESS [None]
  - SICK SINUS SYNDROME [None]
  - SYNCOPE [None]
  - TACHYCARDIA [None]
